FAERS Safety Report 8819381 (Version 2)
Quarter: 2012Q4

REPORT INFORMATION
  Report Type: Spontaneous
  Country: US (occurrence: None)
  Receive Date: 20121003
  Receipt Date: 20121010
  Transmission Date: 20130627
  Serious: Yes (Hospitalization)
  Sender: FDA-Public Use
  Company Number: 2012AL000081

PATIENT
  Age: 76 Year
  Sex: Male
  Weight: 98.8 kg

DRUGS (25)
  1. PRALATREXATE [Suspect]
     Indication: T-CELL LYMPHOMA
     Route: 042
     Dates: start: 20120724
  2. ETOPOSIDE (ETOPOSIDE) [Suspect]
     Route: 042
     Dates: start: 20120724
  3. VINCRISTINE (VINCRISTINE) [Concomitant]
     Route: 042
     Dates: start: 20120724
  4. CYCLOPHOSPHAMIDE (CYCLOPHOSPHAMIDE) [Concomitant]
     Dates: start: 20120724
  5. PREDNISONE (PREDNISONE) [Concomitant]
     Route: 048
     Dates: start: 20120724
  6. ALPRAZOLAM [Concomitant]
  7. ASPIRIN [Concomitant]
  8. AZITHROMYCIN [Concomitant]
  9. BUSPIRONE [Concomitant]
  10. FINASTERIDE [Concomitant]
  11. FLONASE [Concomitant]
  12. FOLIC ACID [Concomitant]
  13. FUROSEMIDE [Concomitant]
  14. IPRATROPIUM [Concomitant]
  15. LEVOTHYROXINE [Concomitant]
  16. OMEPRAZOLE [Concomitant]
  17. PENTAMIDINE [Concomitant]
  18. POTASSIUM CHLORIDE [Concomitant]
  19. PROCHLORPERAZINE [Concomitant]
  20. SIMVASTATIN [Concomitant]
  21. TAMSULOSIN [Concomitant]
  22. TRAZODONE [Concomitant]
  23. ONDANSETRON [Concomitant]
  24. CHLORHEXIDINE GLUCONATE [Concomitant]
  25. ETOPOSIDE [Concomitant]

REACTIONS (21)
  - White blood cell count decreased [None]
  - Neutrophil count decreased [None]
  - Platelet count decreased [None]
  - Anaemia [None]
  - Hyperglycaemia [None]
  - Blood creatinine increased [None]
  - Dyspnoea [None]
  - Dehydration [None]
  - Hyponatraemia [None]
  - Hypotension [None]
  - Sepsis [None]
  - Sinus tachycardia [None]
  - Hyperkalaemia [None]
  - Lung infection [None]
  - Renal failure acute [None]
  - Stridor [None]
  - Urine output decreased [None]
  - Pulmonary oedema [None]
  - Tachypnoea [None]
  - Blood chloride decreased [None]
  - Continuous haemodiafiltration [None]
